FAERS Safety Report 7384972-1 (Version None)
Quarter: 2011Q1

REPORT INFORMATION
  Report Type: 
  Country: None (occurrence: None)
  Receive Date: 20110330
  Receipt Date: 20110318
  Transmission Date: 20110831
  Serious: Yes (Hospitalization, Other)
  Sender: FDA-Public Use
  Company Number: JP-WATSON-2011-02458

PATIENT
  Age: 81 Year
  Sex: Male

DRUGS (6)
  1. BESACOLIN [Suspect]
     Indication: PRODUCT USED FOR UNKNOWN INDICATION
     Dosage: 30 MG, DAILY
     Route: 048
     Dates: start: 20101030
  2. RAPAFLO [Suspect]
     Indication: DYSURIA
     Dosage: 2 MG, DAILY
     Route: 048
     Dates: start: 20110201
  3. EVIPROSTAT                         /01150001/ [Suspect]
     Indication: PRODUCT USED FOR UNKNOWN INDICATION
     Dosage: 3 TABLETS, DAILY
     Route: 048
     Dates: start: 20101030
  4. FLIVAS [Suspect]
     Indication: PRODUCT USED FOR UNKNOWN INDICATION
     Dosage: 75 MG, DAILY
     Route: 048
     Dates: start: 20101030, end: 20110131
  5. RAPAFLO [Suspect]
     Indication: BENIGN PROSTATIC HYPERPLASIA
  6. URAPIDIL [Concomitant]
     Indication: PRODUCT USED FOR UNKNOWN INDICATION
     Dosage: UNK
     Route: 065

REACTIONS (8)
  - TACHYPNOEA [None]
  - SEPTIC SHOCK [None]
  - CIRCULATORY COLLAPSE [None]
  - HEPATITIS FULMINANT [None]
  - ALANINE AMINOTRANSFERASE INCREASED [None]
  - DEHYDRATION [None]
  - ASPARTATE AMINOTRANSFERASE INCREASED [None]
  - UNRESPONSIVE TO STIMULI [None]
